FAERS Safety Report 5237464-X (Version None)
Quarter: 2007Q1

REPORT INFORMATION
  Report Type: 
  Country: None (occurrence: None)
  Receive Date: 20070213
  Receipt Date: 20070201
  Transmission Date: 20070707
  Serious: Yes (Other)
  Sender: FDA-Public Use
  Company Number: GB-ELI_LILLY_AND_COMPANY-GB200702000061

PATIENT
  Age: 42 Year
  Sex: Male

DRUGS (4)
  1. HUMALOG MIX 75/25 [Suspect]
     Indication: DIABETES MELLITUS
     Dosage: 11 U, EACH MORNING
     Dates: start: 20030201
  2. HUMALOG MIX 75/25 [Suspect]
     Dosage: 14 U, EACH EVENING
     Dates: start: 20030201
  3. EXUBERA [Concomitant]
     Indication: DIABETES MELLITUS
     Dosage: 1.3 MG, UNK
     Dates: start: 20070102
  4. PARACETAMOL [Concomitant]
     Indication: MUSCLE SPASMS

REACTIONS (3)
  - BLINDNESS [None]
  - BLOOD GLUCOSE INCREASED [None]
  - SENSORY LOSS [None]
